FAERS Safety Report 6179226-5 (Version None)
Quarter: 2009Q2

REPORT INFORMATION
  Report Type: 
  Country: None (occurrence: None)
  Receive Date: 20090505
  Receipt Date: 20090423
  Transmission Date: 20091009
  Serious: Yes (Death)
  Sender: FDA-Public Use
  Company Number: FR-WYE-H09133209

PATIENT
  Sex: Male

DRUGS (7)
  1. PANTOPRAZOLE SODIUM [Suspect]
     Indication: GASTRIC INFECTION
     Dosage: UNKNOWN
     Route: 048
     Dates: start: 20090219
  2. SPASFON [Suspect]
     Dosage: UNKNOWN
     Route: 048
     Dates: start: 20090201
  3. COLCHIMAX [Suspect]
     Indication: GOUT
     Dosage: 3 DOSAGE FORMS
     Route: 048
     Dates: start: 20090316, end: 20090301
  4. COLCHIMAX [Suspect]
     Dosage: 1 DOSAGE FORM
     Route: 048
     Dates: start: 20090301, end: 20090328
  5. COLCHIMAX [Suspect]
     Dosage: 2 DOSAGE FORMS
     Route: 048
     Dates: start: 20090329, end: 20090402
  6. ROCEPHIN [Suspect]
     Indication: URINARY TRACT INFECTION
     Dosage: UNKNOWN
     Route: 042
     Dates: start: 20090201, end: 20090406
  7. BACTRIM [Suspect]
     Indication: URINARY TRACT INFECTION
     Dosage: UNKNOWN
     Dates: start: 20090407

REACTIONS (3)
  - CLOSTRIDIAL INFECTION [None]
  - LEUKOPENIA [None]
  - SEPTIC SHOCK [None]
